FAERS Safety Report 9978989 (Version 1)
Quarter: 2014Q1

REPORT INFORMATION
  Report Type: Report from Study
  Country: US (occurrence: US)
  Receive Date: 20140306
  Receipt Date: 20140306
  Transmission Date: 20141002
  Serious: No
  Sender: FDA-Public Use
  Company Number: US-ABBVIE-13P-163-1169239-00

PATIENT
  Age: 55 Year
  Sex: Male
  Weight: 127.12 kg

DRUGS (5)
  1. HUMIRA [Suspect]
     Indication: PSORIASIS
     Route: 058
     Dates: start: 2012
  2. FUROSEMIDE [Concomitant]
     Indication: JOINT SWELLING
  3. CITALOPRAM [Concomitant]
     Indication: PRODUCT USED FOR UNKNOWN INDICATION
  4. TRAZODONE [Concomitant]
     Indication: SLEEP DISORDER
  5. VICODIN [Concomitant]
     Indication: PAIN
     Dates: start: 201311

REACTIONS (6)
  - Joint dislocation [Recovering/Resolving]
  - Physical assault [Recovered/Resolved]
  - Pain [Recovering/Resolving]
  - Psoriasis [Recovering/Resolving]
  - Stress [Recovering/Resolving]
  - Joint swelling [Recovering/Resolving]
